FAERS Safety Report 16546971 (Version 1)
Quarter: 2019Q3

REPORT INFORMATION
  Report Type: Spontaneous
  Country: US (occurrence: US)
  Receive Date: 20190709
  Receipt Date: 20190709
  Transmission Date: 20191004
  Serious: Yes (Other)
  Sender: FDA-Public Use
  Company Number: PHHY2019US153921

PATIENT
  Age: 26 Year
  Sex: Female

DRUGS (9)
  1. LINEZOLID. [Suspect]
     Active Substance: LINEZOLID
     Dosage: 600 MG, Q12H
     Route: 048
  2. AZITHROMYCIN ANHYDROUS. [Suspect]
     Active Substance: AZITHROMYCIN ANHYDROUS
     Indication: MYCOBACTERIUM ABSCESSUS INFECTION
     Dosage: 250 MG, Q24H
     Route: 048
  3. CEFOXITIN [Suspect]
     Active Substance: CEFOXITIN SODIUM
     Indication: MYCOBACTERIUM ABSCESSUS INFECTION
     Dosage: 12 G, Q12H
     Route: 042
  4. AMIKACIN. [Suspect]
     Active Substance: AMIKACIN
     Indication: MYCOBACTERIUM ABSCESSUS INFECTION
     Dosage: 25 MG/KG, QW3
     Route: 042
  5. AMIKACIN. [Suspect]
     Active Substance: AMIKACIN
     Dosage: 1 G, IN 5L 0.9% NORMAL SALINE IRRIGATION
     Route: 065
  6. TIGECYCLINE. [Suspect]
     Active Substance: TIGECYCLINE
     Indication: MYCOBACTERIUM ABSCESSUS INFECTION
     Dosage: 50 MG, Q12H
     Route: 042
  7. AMIKACIN. [Suspect]
     Active Substance: AMIKACIN
     Dosage: 250 MG, Q24H
     Route: 055
  8. LINEZOLID. [Suspect]
     Active Substance: LINEZOLID
     Indication: MYCOBACTERIUM ABSCESSUS INFECTION
     Dosage: 300 MG, Q12H
     Route: 048
  9. CEFOXITIN [Suspect]
     Active Substance: CEFOXITIN SODIUM
     Dosage: 12 G, Q24H
     Route: 042

REACTIONS (5)
  - Neuropathy peripheral [Unknown]
  - Mycobacterium abscessus infection [Unknown]
  - Soft tissue infection [Unknown]
  - Product use in unapproved indication [Unknown]
  - Postoperative wound infection [Unknown]
